FAERS Safety Report 6145013 (Version 15)
Quarter: 2013Q3

REPORT INFORMATION
  Report Type: Spontaneous
  Country: US (occurrence: US)
  Receive Date: 20061011
  Receipt Date: 20130808
  Transmission Date: 20140515
  Serious: Yes (Hospitalization, Other)
  Sender: FDA-Public Use
  Company Number: PHEH2006US12237

PATIENT
  Age: 83 Year
  Sex: Female
  Weight: 102.49 kg

DRUGS (51)
  1. AREDIA [Suspect]
     Indication: BREAST CANCER METASTATIC
     Dosage: 60 MG,
  2. ZOMETA [Suspect]
     Indication: BREAST CANCER METASTATIC
     Dosage: 2 MG,     IN 100CC NS
  3. NPH INSULIN [Concomitant]
  4. AVANDIA [Concomitant]
  5. BACTRIM [Concomitant]
  6. ASA [Concomitant]
  7. TOPROL XL [Concomitant]
  8. XALATAN [Concomitant]
  9. FEMARA [Concomitant]
  10. ALTACE [Concomitant]
  11. MVI [Concomitant]
  12. MOTRIN [Concomitant]
  13. PERCOCET [Concomitant]
  14. OXYCODONE [Concomitant]
  15. TYLENOL [Concomitant]
  16. NYSTATIN [Concomitant]
  17. FLUCONAZOLE [Concomitant]
  18. ZOFRAN [Concomitant]
  19. LEVAQUIN [Concomitant]
  20. HYDROCHLOROTHIAZIDE [Concomitant]
  21. VIOXX [Concomitant]
  22. DARVOCET-N [Concomitant]
  23. TIAZAC [Concomitant]
  24. DALMANE [Concomitant]
  25. BETOPTIC [Concomitant]
  26. CARDIZEM CD [Concomitant]
  27. COLACE [Concomitant]
  28. COUMADIN ^BOOTS^ [Concomitant]
  29. FLORESTOR [Concomitant]
  30. KLOR-CON [Concomitant]
  31. LASIX [Concomitant]
  32. LUMIGAN [Concomitant]
  33. FAMVIR [Concomitant]
  34. NEURONTIN [Concomitant]
  35. CARDURA [Concomitant]
  36. ACCUPRIL [Concomitant]
  37. DETROL [Concomitant]
  38. FLORINEF [Concomitant]
  39. DYAZIDE [Concomitant]
  40. DAYPRO [Concomitant]
  41. DILACOR                                 /BRA/ [Concomitant]
  42. REZULIN [Concomitant]
  43. RELAFEN [Concomitant]
  44. BEXTRA [Concomitant]
  45. COSOPT [Concomitant]
  46. SILVER SULFADIAZINE [Concomitant]
  47. ZOVIRAX [Concomitant]
  48. POTASSIUM CHLORIDE [Concomitant]
  49. MIRALAX [Concomitant]
  50. KAYEXALATE [Concomitant]
     Dosage: 15 G, UNK
     Route: 048
  51. PROTONIX [Concomitant]
     Dosage: 40 MG, UNK
     Route: 042

REACTIONS (104)
  - Transient ischaemic attack [Unknown]
  - Atrial fibrillation [Unknown]
  - Tachycardia [Unknown]
  - Unresponsive to stimuli [Unknown]
  - Hypotonia [Unknown]
  - Tendonitis [Unknown]
  - Myositis [Unknown]
  - Arthralgia [Unknown]
  - Gait disturbance [Unknown]
  - Osteonecrosis of jaw [Unknown]
  - Pain [Unknown]
  - Deformity [Unknown]
  - Inflammation [Unknown]
  - Hypophagia [Unknown]
  - Emotional distress [Unknown]
  - Anxiety [Unknown]
  - Life expectancy shortened [Unknown]
  - Decreased interest [Unknown]
  - Injury [Unknown]
  - Physical disability [Unknown]
  - Impaired healing [Unknown]
  - Bone disorder [Unknown]
  - Purulent discharge [Unknown]
  - Infection [Unknown]
  - Abscess [Unknown]
  - Primary sequestrum [Unknown]
  - Osteomyelitis [Unknown]
  - Urinary tract infection [Unknown]
  - Renal failure [Unknown]
  - Anaemia [Unknown]
  - Oedema peripheral [Unknown]
  - Azotaemia [Unknown]
  - Bone marrow oedema [Unknown]
  - Lumbar spinal stenosis [Unknown]
  - Radiculopathy [Unknown]
  - Diabetic neuropathy [Unknown]
  - Skin cancer [Unknown]
  - Squamous cell carcinoma of skin [Unknown]
  - Cellulitis [Unknown]
  - Skin ulcer [Unknown]
  - Subcutaneous abscess [Unknown]
  - Mitral valve incompetence [Unknown]
  - Tricuspid valve incompetence [Unknown]
  - Calculus urinary [Unknown]
  - Pneumonia [Unknown]
  - Cerebrovascular accident [Unknown]
  - Cardiac failure congestive [Unknown]
  - Left atrial dilatation [Unknown]
  - Right atrial dilatation [Unknown]
  - Pulmonary hypertension [Unknown]
  - Staphylococcal infection [Unknown]
  - Arteriosclerosis [Unknown]
  - Vascular calcification [Unknown]
  - Dyspnoea [Unknown]
  - Wheezing [Unknown]
  - Gastrointestinal haemorrhage [Unknown]
  - Occult blood [Unknown]
  - Melaena [Unknown]
  - Dehydration [Unknown]
  - Hyperlipidaemia [Unknown]
  - Vitamin D deficiency [Unknown]
  - Hearing impaired [Unknown]
  - Memory impairment [Unknown]
  - Bradycardia [Unknown]
  - Arthritis [Unknown]
  - Deep vein thrombosis [Unknown]
  - Pulmonary congestion [Unknown]
  - Pleural effusion [Unknown]
  - Hypercalcaemia [Unknown]
  - Confusional state [Unknown]
  - Obesity [Unknown]
  - Rash [Unknown]
  - Restlessness [Unknown]
  - Tension [Unknown]
  - Blood urea increased [Unknown]
  - Blood creatinine increased [Unknown]
  - Cough [Unknown]
  - Asthenia [Unknown]
  - Prothrombin time prolonged [Unknown]
  - International normalised ratio increased [Unknown]
  - Feeling hot [Unknown]
  - Faecaloma [Unknown]
  - Erythema [Unknown]
  - Ecchymosis [Unknown]
  - Haemoglobin decreased [Unknown]
  - Haematocrit decreased [Unknown]
  - Red blood cell count decreased [Unknown]
  - Lymphocyte count decreased [Unknown]
  - Bone lesion [Unknown]
  - Intervertebral disc degeneration [Unknown]
  - Spondylolisthesis [Unknown]
  - Bronchitis [Unknown]
  - Glaucoma [Unknown]
  - Snoring [Unknown]
  - Dizziness [Unknown]
  - Fatigue [Unknown]
  - Neck pain [Unknown]
  - Meningioma [Unknown]
  - Somnolence [Unknown]
  - Cerebral infarction [Unknown]
  - Diverticulitis [Unknown]
  - Osteoarthritis [Unknown]
  - Post procedural complication [Unknown]
  - Failure to thrive [Unknown]
